FAERS Safety Report 11315769 (Version 1)
Quarter: 2015Q3

REPORT INFORMATION
  Report Type: Spontaneous
  Country: US (occurrence: None)
  Receive Date: 20150724
  Receipt Date: 20150724
  Transmission Date: 20151125
  Serious: Yes (Other)
  Sender: FDA-Public Use
  Company Number: US-H14001-15-01359

PATIENT
  Age: 55 Year
  Sex: Male

DRUGS (11)
  1. VINCRISTINE [Suspect]
     Active Substance: VINCRISTINE
     Indication: CHEMOTHERAPY
     Dosage: 6 CYCLES
  2. AZITHROMYCIN [Concomitant]
     Active Substance: AZITHROMYCIN ANHYDROUS
  3. PREDNISONE. [Suspect]
     Active Substance: PREDNISONE
     Indication: CHEMOTHERAPY
     Dosage: 6 CYCLES
  4. ETOPOSIDE. [Suspect]
     Active Substance: ETOPOSIDE
     Indication: CHEMOTHERAPY
     Dosage: 4 CYCLES
  5. DOXORUBICIN [Suspect]
     Active Substance: DOXORUBICIN
     Indication: CHEMOTHERAPY
     Dosage: 6 CYCLES
  6. RITUXIMAB [Suspect]
     Active Substance: RITUXIMAB
     Indication: CHEMOTHERAPY
     Dosage: 6 CYCLES
  7. RITONAVIR. [Concomitant]
     Active Substance: RITONAVIR
  8. DARUNAVIR [Concomitant]
     Active Substance: DARUNAVIR
  9. TRUVADA (TRUVADA) (UNKNOWN) (EMTRICITABINE, TENOFOVIR DISOPROXIL FUMARATE) [Concomitant]
  10. BACTRIM (BACTRIM) (UNKNOWN) (SULFAMETHOXAZOLE, TRIMETHOPRIM) [Concomitant]
  11. CYCLOPHOSPHAMIDE. [Suspect]
     Active Substance: CYCLOPHOSPHAMIDE
     Indication: CHEMOTHERAPY
     Dosage: 6 CYCLES

REACTIONS (7)
  - Immune reconstitution inflammatory syndrome [None]
  - B-cell lymphoma [None]
  - Fatigue [None]
  - Pancytopenia [None]
  - Neuropathy peripheral [None]
  - General physical health deterioration [None]
  - Malignant neoplasm progression [None]
